FAERS Safety Report 5878389-6 (Version None)
Quarter: 2008Q3

REPORT INFORMATION
  Report Type: 
  Country: None (occurrence: None)
  Receive Date: 20080911
  Receipt Date: 20080903
  Transmission Date: 20090109
  Serious: Yes (Other)
  Sender: FDA-Public Use
  Company Number: DK-PFIZER INC-2008071673

PATIENT
  Age: 38 Year
  Sex: Female

DRUGS (4)
  1. NELFINAVIR MESILATE [Suspect]
     Indication: HIV INFECTION
  2. DARUNAVIR [Suspect]
     Indication: ACQUIRED IMMUNODEFICIENCY SYNDROME
  3. ZIDOVUDINE [Suspect]
     Indication: HIV INFECTION
  4. LAMIVUDINE [Suspect]
     Indication: HIV INFECTION

REACTIONS (5)
  - CD4 LYMPHOCYTES DECREASED [None]
  - GASTROINTESTINAL DISORDER [None]
  - IMMUNE RECONSTITUTION SYNDROME [None]
  - MICROSPORIDIA INFECTION [None]
  - NEOPLASM MALIGNANT [None]
